FAERS Safety Report 6636258-8 (Version None)
Quarter: 2010Q1

REPORT INFORMATION
  Report Type: 
  Country: None (occurrence: None)
  Receive Date: 20100311
  Receipt Date: 20100301
  Transmission Date: 20100710
  Serious: Yes (Other)
  Sender: FDA-Public Use
  Company Number: 525011

PATIENT
  Age: 1 Year
  Sex: Male

DRUGS (5)
  1. CYTARABINE [Suspect]
     Indication: PRECURSOR B-LYMPHOBLASTIC LYMPHOMA
  2. METHOTREXATE [Suspect]
     Indication: PRECURSOR B-LYMPHOBLASTIC LYMPHOMA
  3. VINCRISTINE SULFATE [Suspect]
     Indication: PRECURSOR B-LYMPHOBLASTIC LYMPHOMA
  4. DAUNORUBICIN HCL [Suspect]
     Indication: PRECURSOR B-LYMPHOBLASTIC LYMPHOMA
  5. PREDNISONE TAB [Suspect]
     Indication: PRECURSOR B-LYMPHOBLASTIC LYMPHOMA

REACTIONS (6)
  - ADENOVIRUS INFECTION [None]
  - GASTROINTESTINAL HAEMORRHAGE [None]
  - HEPATIC FAILURE [None]
  - MALIGNANT NEOPLASM PROGRESSION [None]
  - NO THERAPEUTIC RESPONSE [None]
  - STEM CELL TRANSPLANT [None]
